APPROVED DRUG PRODUCT: CYCLOBENZAPRINE HYDROCHLORIDE
Active Ingredient: CYCLOBENZAPRINE HYDROCHLORIDE
Strength: 15MG
Dosage Form/Route: CAPSULE, EXTENDED RELEASE;ORAL
Application: A214732 | Product #001 | TE Code: AB
Applicant: NOVAST LABORATORIES LTD
Approved: Aug 27, 2024 | RLD: No | RS: No | Type: RX